FAERS Safety Report 7549130-6 (Version None)
Quarter: 2011Q2

REPORT INFORMATION
  Report Type: 
  Country: None (occurrence: None)
  Receive Date: 20110615
  Receipt Date: 20110601
  Transmission Date: 20111010
  Serious: Yes (Hospitalization, Other)
  Sender: FDA-Public Use
  Company Number: PHHY2011BR48287

PATIENT
  Sex: Female

DRUGS (3)
  1. RASILEZ HCT [Suspect]
     Indication: HYPERTENSION
     Dosage: 300 MG ALIS AND 12.5 MG HCT, QD
     Route: 048
  2. DIOVAN [Suspect]
     Dosage: 160 MG DAILY
     Route: 048
  3. DIOVAN [Suspect]
     Indication: HYPERTENSION
     Dosage: 320 MG, DAILY
     Route: 048

REACTIONS (4)
  - BLOOD PRESSURE FLUCTUATION [None]
  - MEMORY IMPAIRMENT [None]
  - ABNORMAL BEHAVIOUR [None]
  - CEREBROVASCULAR ACCIDENT [None]
